FAERS Safety Report 4828267-6 (Version None)
Quarter: 2005Q4

REPORT INFORMATION
  Report Type: 
  Country: None (occurrence: None)
  Receive Date: 20051114
  Receipt Date: 20051114
  Transmission Date: 20060501
  Serious: No
  Sender: FDA-Public Use
  Company Number: None

PATIENT
  Sex: Female
  Weight: 68.0396 kg

DRUGS (5)
  1. JANTOVEN [Suspect]
     Indication: THROMBOSIS
     Dosage: 5 MG QD
     Dates: start: 20051013, end: 20051110
  2. XANAX [Concomitant]
  3. VICODEN [Concomitant]
  4. VERAPAMIL [Concomitant]
  5. DYAZIDE [Concomitant]

REACTIONS (2)
  - INTERNATIONAL NORMALISED RATIO INCREASED [None]
  - PHARMACEUTICAL PRODUCT COMPLAINT [None]
